FAERS Safety Report 13485866 (Version 1)
Quarter: 2017Q2

REPORT INFORMATION
  Report Type: Spontaneous
  Country: US (occurrence: US)
  Receive Date: 20170425
  Receipt Date: 20170425
  Transmission Date: 20170830
  Serious: Yes (Hospitalization)
  Sender: FDA-Public Use
  Company Number: None

PATIENT
  Age: 72 Year
  Sex: Male
  Weight: 89.22 kg

DRUGS (1)
  1. LAMOTRIGINE. [Suspect]
     Active Substance: LAMOTRIGINE
     Indication: SEIZURE
     Dosage: 25 MG OTHER PO
     Route: 048
     Dates: start: 20170302, end: 20170326

REACTIONS (3)
  - Erythema [None]
  - Feeling hot [None]
  - Drug eruption [None]

NARRATIVE: CASE EVENT DATE: 20170327
